FAERS Safety Report 5379243-9 (Version None)
Quarter: 2007Q3

REPORT INFORMATION
  Report Type: 
  Country: None (occurrence: None)
  Receive Date: 20070705
  Receipt Date: 20070704
  Transmission Date: 20080115
  Serious: Yes (Other)
  Sender: FDA-Public Use
  Company Number: FR-ROXANE LABORATORIES, INC-2007-DE-03972GD

PATIENT

DRUGS (2)
  1. MORPHINE [Suspect]
     Indication: PAIN
     Dosage: 0.1 MG/KG, FOLLOWED BY ADDITIONAL 3 MG EVERY 5 MINUTES UNTIL DEFINED PAIN RELIEF (VAS SCORE {/=30/10
     Route: 042
  2. ANTIBIOTIC [Suspect]

REACTIONS (1)
  - ANAPHYLACTOID REACTION [None]
